FAERS Safety Report 16118738 (Version 3)
Quarter: 2019Q4

REPORT INFORMATION
  Report Type: Spontaneous
  Country: US (occurrence: US)
  Receive Date: 20190326
  Receipt Date: 20191010
  Transmission Date: 20200122
  Serious: Yes (Hospitalization, Other)
  Sender: FDA-Public Use
  Company Number: US-JNJFOC-20190334471

PATIENT
  Age: 65 Year
  Sex: Male
  Weight: 70.37 kg

DRUGS (3)
  1. LOPRESSOR [Concomitant]
     Active Substance: METOPROLOL TARTRATE
     Route: 065
  2. FAMIVIR [Concomitant]
     Active Substance: FAMCICLOVIR
     Route: 065
  3. XARELTO [Suspect]
     Active Substance: RIVAROXABAN
     Indication: PULMONARY EMBOLISM
     Dosage: QPM
     Route: 048
     Dates: start: 2018

REACTIONS (8)
  - Arthropathy [Not Recovered/Not Resolved]
  - Fall [Not Recovered/Not Resolved]
  - Epistaxis [Recovered/Resolved]
  - Head injury [Unknown]
  - Extra dose administered [Unknown]
  - Cataract [Not Recovered/Not Resolved]
  - Asthenia [Not Recovered/Not Resolved]
  - Hypoaesthesia [Not Recovered/Not Resolved]

NARRATIVE: CASE EVENT DATE: 20190319
